FAERS Safety Report 5817924-0 (Version None)
Quarter: 2008Q3

REPORT INFORMATION
  Report Type: 
  Country: None (occurrence: None)
  Receive Date: 20080722
  Receipt Date: 20070702
  Transmission Date: 20090109
  Serious: No
  Sender: FDA-Public Use
  Company Number: US-BAYER-US-2007-024526

PATIENT
  Age: 58 Year
  Sex: Female
  Weight: 61 kg

DRUGS (9)
  1. MAGNEVIST [Suspect]
     Indication: NUCLEAR MAGNETIC RESONANCE IMAGING
     Route: 042
     Dates: start: 20070630, end: 20070630
  2. PLAVIX [Concomitant]
  3. VYTORIN [Concomitant]
  4. ASPIRIN [Concomitant]
  5. DURAGESIC-100 [Concomitant]
  6. NEURONTIN [Concomitant]
     Dosage: UNIT DOSE: 600 MG
  7. DIAZIDE [Concomitant]
  8. DETROL [Concomitant]
  9. ZYRTEC [Concomitant]

REACTIONS (6)
  - INJECTION SITE DISCOMFORT [None]
  - INJECTION SITE EXTRAVASATION [None]
  - INJECTION SITE MASS [None]
  - INJECTION SITE WARMTH [None]
  - OEDEMA PERIPHERAL [None]
  - TREMOR [None]
